FAERS Safety Report 8620792-5 (Version None)
Quarter: 2012Q3

REPORT INFORMATION
  Report Type: 
  Country: None (occurrence: None)
  Receive Date: 20120824
  Receipt Date: 20120821
  Transmission Date: 20120928
  Serious: Yes (Death, Hospitalization)
  Sender: FDA-Public Use
  Company Number: TH-ROCHE-1089768

PATIENT
  Sex: Female
  Weight: 57.4 kg

DRUGS (14)
  1. PREDNISONE TAB [Suspect]
     Indication: B-CELL LYMPHOMA
     Route: 042
     Dates: start: 20120302
  2. DEXAMETHASONE [Concomitant]
     Indication: PREMEDICATION
     Dates: start: 20120302
  3. ACETAMINOPHEN [Concomitant]
     Indication: PREMEDICATION
     Dates: start: 20120302
  4. ONDANSETRON [Concomitant]
     Indication: VOMITING
  5. DOXORUBICIN HYDROCHLORIDE [Suspect]
     Indication: B-CELL LYMPHOMA
     Route: 042
     Dates: start: 20120302
  6. MABTHERA [Suspect]
     Indication: B-CELL LYMPHOMA
     Route: 042
     Dates: start: 20120302
  7. METFORMIN HCL [Concomitant]
     Indication: DIABETES MELLITUS
     Dates: start: 20110709
  8. CYCLOPHOSPHAMIDE [Suspect]
     Indication: B-CELL LYMPHOMA
     Route: 042
     Dates: start: 20120302
  9. ONDANSETRON [Concomitant]
     Indication: NAUSEA
     Dates: start: 20120302
  10. ONDANSETRON [Concomitant]
     Indication: PREMEDICATION
  11. VINCRISTINE [Suspect]
     Indication: B-CELL LYMPHOMA
     Dates: start: 20120302
  12. ATENOLOL [Concomitant]
     Indication: HYPERTENSION
     Dates: start: 19981224
  13. SIMVASTATIN [Concomitant]
     Indication: DYSLIPIDAEMIA
     Dates: start: 20011016
  14. BENADRYL [Concomitant]
     Indication: PREMEDICATION
     Dates: start: 20120302

REACTIONS (1)
  - NEUTROPENIA [None]
